FAERS Safety Report 15881353 (Version 1)
Quarter: 2019Q1

REPORT INFORMATION
  Report Type: Spontaneous
  Country: FR (occurrence: FR)
  Receive Date: 20190128
  Receipt Date: 20190128
  Transmission Date: 20190417
  Serious: Yes (Other)
  Sender: FDA-Public Use
  Company Number: FR-MERZ NORTH AMERICA, INC.-19MRZ-00042

PATIENT
  Age: 30 Year
  Sex: Female

DRUGS (1)
  1. ASCLERA [Suspect]
     Active Substance: POLIDOCANOL
     Indication: VARICOSE VEIN
     Dosage: AETOXISCLEROL TAMPONNE 0.5% (LIQUID), DOSAGE FORM: SOLUTION FOR INJECTION, ACTIVE SUBSTANCES: LAUROM
     Dates: start: 20180212, end: 20180212

REACTIONS (3)
  - Abortion induced [Recovered/Resolved]
  - Foetal death [Recovered/Resolved]
  - Exposure during pregnancy [Recovered/Resolved]

NARRATIVE: CASE EVENT DATE: 20180212
